FAERS Safety Report 5055890-9 (Version None)
Quarter: 2006Q3

REPORT INFORMATION
  Report Type: 
  Country: None (occurrence: None)
  Receive Date: 20060717
  Receipt Date: 20060717
  Transmission Date: 20061208
  Serious: Yes (Other)
  Sender: FDA-Public Use
  Company Number: None

PATIENT
  Age: 41 Year
  Sex: Female
  Weight: 57.1532 kg

DRUGS (1)
  1. VANDAZOLE [Suspect]
     Indication: PROPHYLAXIS
     Dosage: 1APPLICATOR AT BEDTIME VAG
     Route: 067
     Dates: start: 20060707, end: 20060714

REACTIONS (1)
  - BURNING SENSATION [None]
